FAERS Safety Report 21748658 (Version 2)
Quarter: 2022Q4

REPORT INFORMATION
  Report Type: Report from Study
  Country: DE (occurrence: None)
  Receive Date: 20221219
  Receipt Date: 20221223
  Transmission Date: 20230113
  Serious: Yes (Hospitalization)
  Sender: FDA-Public Use
  Company Number: DE-ROCHE-3226625

PATIENT
  Age: 69 Year
  Sex: Female
  Weight: 88 kg

DRUGS (11)
  1. PERTUZUMAB [Suspect]
     Active Substance: PERTUZUMAB
     Indication: Breast cancer metastatic
     Dosage: DATE OF LAST DOSE PRIOR TO SAE/AESI:17/NOV/2022
     Route: 042
     Dates: start: 20221117
  2. TRASTUZUMAB [Suspect]
     Active Substance: TRASTUZUMAB
     Indication: Breast cancer metastatic
     Dosage: DATE OF LAST DOSE PRIOR TO SAE/AESI:17/NOV/2022
     Route: 042
     Dates: start: 20221117
  3. DOCETAXEL [Suspect]
     Active Substance: DOCETAXEL
     Indication: Breast cancer metastatic
     Route: 065
  4. ALLOPURINOL [Concomitant]
     Active Substance: ALLOPURINOL
     Route: 065
     Dates: start: 20210101
  5. AUGENTROPFEN [Concomitant]
     Dosage: 1 TROPFEN
     Route: 065
     Dates: start: 20060101
  6. LEVOTHYROXINE [Concomitant]
     Active Substance: LEVOTHYROXINE
     Dates: start: 20060101
  7. METOPROLOL [Concomitant]
     Active Substance: METOPROLOL
     Dates: start: 20210101
  8. PANTOPRAZOLE [Concomitant]
     Active Substance: PANTOPRAZOLE
     Dates: start: 20210101
  9. RAMIPRIL [Concomitant]
     Active Substance: RAMIPRIL
     Dates: start: 20210101
  10. SIMVASTATIN [Concomitant]
     Active Substance: SIMVASTATIN
     Dates: start: 20200101
  11. TORSEMIDE [Concomitant]
     Active Substance: TORSEMIDE
     Dates: start: 20210101

REACTIONS (2)
  - Diarrhoea [Recovered/Resolved]
  - Stomatitis [Not Recovered/Not Resolved]

NARRATIVE: CASE EVENT DATE: 20221127
